FAERS Safety Report 7996338-1 (Version None)
Quarter: 2011Q4

REPORT INFORMATION
  Report Type: 
  Country: None (occurrence: None)
  Receive Date: 20111220
  Receipt Date: 20111208
  Transmission Date: 20120403
  Serious: Yes (Hospitalization, Other)
  Sender: FDA-Public Use
  Company Number: US-ELI_LILLY_AND_COMPANY-US201003002718

PATIENT
  Sex: Female
  Weight: 49 kg

DRUGS (33)
  1. FORTEO [Suspect]
     Dosage: 20 UG, DAILY (1/D)
  2. PREDNISONE TAB [Concomitant]
     Dosage: 10 MG, UNK
     Route: 048
  3. OSCAL [Concomitant]
     Dosage: UNK, TID
  4. ALPRAZOLAM [Concomitant]
     Indication: ANXIETY
     Dosage: 0.25 MG, QD
     Route: 048
  5. SINGULAIR [Concomitant]
     Dosage: 10 MG, UNK
     Route: 048
  6. METOPROLOL TARTRATE [Concomitant]
  7. ATENOLOL [Concomitant]
     Dosage: 25 MG, QD
  8. ALENDRONATE SODIUM [Concomitant]
     Dosage: 70 MG, WEEKLY (1/W)
     Route: 048
  9. FORTEO [Suspect]
     Dosage: 20 UG, QD
  10. ACTONEL [Concomitant]
     Dosage: 75 MG, WEEKLY
     Route: 048
  11. FORTEO [Suspect]
     Indication: OSTEOPOROSIS
     Dosage: 20 UG, DAILY (1/D)
     Route: 065
     Dates: start: 20091114
  12. DIOVAN [Concomitant]
     Dosage: 160 MG, QD
  13. CARTIA XT [Concomitant]
     Dosage: 120 MG, QD
     Route: 048
  14. ACTONEL [Concomitant]
     Dosage: 35 MG, WEEKLY (1/W)
     Route: 048
  15. LISINOPRIL [Concomitant]
     Dosage: 40 MG, QD
     Route: 048
  16. FORTEO [Suspect]
     Dosage: 20 UG, DAILY (1/D)
     Route: 065
  17. FORTEO [Suspect]
     Dosage: 20 UG, DAILY (1/D)
  18. ADVAIR DISKUS 100/50 [Concomitant]
     Dosage: UNK, BID
  19. NITROSTAT [Concomitant]
     Indication: CHEST DISCOMFORT
     Dosage: 0.4 MG, OTHER
     Route: 060
  20. NEXIUM [Concomitant]
     Dosage: 40 MG, QD
     Route: 048
  21. IMDUR [Concomitant]
     Dosage: 30 MG, EACH MORNING
     Route: 048
  22. MULTI-VITAMIN [Concomitant]
  23. FORTEO [Suspect]
     Dosage: 20 UG, QD
     Dates: end: 20111114
  24. ALBUTEROL [Concomitant]
     Dosage: 90 UG, QID
  25. LASIX [Concomitant]
     Dosage: 20 MG, QD
  26. FORTEO [Suspect]
     Dosage: 20 UG, DAILY (1/D)
  27. FORTEO [Suspect]
     Dosage: 20 UG, QD
  28. CARDIA [Concomitant]
  29. ASPIRIN [Concomitant]
     Dosage: 81 MG, QD
  30. SPIRIVA [Concomitant]
  31. CALCIUM + VITAMIN D [Concomitant]
  32. DUONEB [Concomitant]
     Dosage: 3 ML, QID
  33. AZITHROMYCIN [Concomitant]
     Dosage: 250 MG, UNK
     Route: 048

REACTIONS (17)
  - PAIN IN EXTREMITY [None]
  - PAIN [None]
  - WEIGHT DECREASED [None]
  - MYOCARDIAL INFARCTION [None]
  - MYALGIA [None]
  - BRONCHITIS [None]
  - JOINT CONTRACTURE [None]
  - JOINT SWELLING [None]
  - OEDEMA PERIPHERAL [None]
  - GASTROENTERITIS VIRAL [None]
  - MUSCLE SPASMS [None]
  - NAUSEA [None]
  - ASTHMA [None]
  - HOSPITALISATION [None]
  - GAIT DISTURBANCE [None]
  - ARTHRALGIA [None]
  - DECREASED APPETITE [None]
